FAERS Safety Report 25498411 (Version 1)
Quarter: 2025Q3

REPORT INFORMATION
  Report Type: Other
  Country: US (occurrence: US)
  Receive Date: 20250701
  Receipt Date: 20250701
  Transmission Date: 20251021
  Serious: Yes (Hospitalization, Other)
  Sender: COREPHARMA LLC
  Company Number: US-CorePharma LLC-2179678

PATIENT
  Sex: Male

DRUGS (2)
  1. LISINOPRIL [Suspect]
     Active Substance: LISINOPRIL
     Indication: Product used for unknown indication
  2. AMLODIPINE [Interacting]
     Active Substance: AMLODIPINE BESYLATE

REACTIONS (15)
  - Distributive shock [Recovered/Resolved]
  - Intentional product misuse [Unknown]
  - Intentional overdose [Unknown]
  - Drug interaction [Unknown]
  - Tachycardia [Recovered/Resolved]
  - Hypotension [Recovered/Resolved]
  - Paranoia [Recovered/Resolved]
  - Delusion [Recovered/Resolved]
  - Agitation [Recovered/Resolved]
  - Leukocytosis [Recovered/Resolved]
  - Haemodynamic instability [Recovered/Resolved]
  - Toxicity to various agents [Recovered/Resolved]
  - Schizophrenia [Recovered/Resolved]
  - Sepsis [Recovered/Resolved]
  - Renal injury [Recovered/Resolved]
